FAERS Safety Report 6327796-6 (Version None)
Quarter: 2009Q3

REPORT INFORMATION
  Report Type: 
  Country: None (occurrence: None)
  Receive Date: 20090824
  Receipt Date: 20090814
  Transmission Date: 20100115
  Serious: Yes (Other)
  Sender: FDA-Public Use
  Company Number: DSA_33440_2009

PATIENT
  Sex: Female
  Weight: 68.3117 kg

DRUGS (10)
  1. XENAZINE [Suspect]
     Indication: BALLISMUS
     Dosage: (25 MG TID ORAL)
     Route: 048
     Dates: start: 20090327, end: 20090327
  2. CLONAZEPAM [Concomitant]
  3. PROCHLORPERAZINE [Concomitant]
  4. ALEVE [Concomitant]
  5. FLEXERIL [Concomitant]
  6. ZOCOR [Concomitant]
  7. TRAMADOL HCL [Concomitant]
  8. ZOLOFT /01011402/ [Concomitant]
  9. LISINOPRIL AND HYDROCHLOROTHIAZIDE [Concomitant]
  10. BENADRYL [Concomitant]

REACTIONS (10)
  - BLOOD PRESSURE INCREASED [None]
  - CARDIAC DISORDER [None]
  - CHEST PAIN [None]
  - DEPRESSION [None]
  - DIARRHOEA [None]
  - DOCUMENTED HYPERSENSITIVITY TO ADMINISTERED DRUG [None]
  - DRUG PRESCRIBING ERROR [None]
  - HYPOPHAGIA [None]
  - MIGRAINE [None]
  - URTICARIA [None]
